FAERS Safety Report 7665430-3 (Version None)
Quarter: 2011Q3

REPORT INFORMATION
  Report Type: 
  Country: None (occurrence: None)
  Receive Date: 20110806
  Receipt Date: 20110616
  Transmission Date: 20111222
  Serious: No
  Sender: FDA-Public Use
  Company Number: US-ABBOTT-11P-163-0733496-00

PATIENT
  Sex: Female

DRUGS (3)
  1. NIASPAN [Suspect]
  2. NIASPAN [Suspect]
     Indication: BLOOD CHOLESTEROL ABNORMAL
  3. NIASPAN [Suspect]

REACTIONS (1)
  - VOMITING [None]
